FAERS Safety Report 25869968 (Version 1)
Quarter: 2025Q4

REPORT INFORMATION
  Report Type: Spontaneous
  Country: US (occurrence: None)
  Receive Date: 20251001
  Receipt Date: 20251001
  Transmission Date: 20260117
  Serious: Yes (Other)
  Sender: FDA-CTU
  Company Number: None

PATIENT
  Age: 81 Year
  Sex: Female

DRUGS (2)
  1. FONDAPARINUX [Suspect]
     Active Substance: FONDAPARINUX
     Indication: Venous thrombosis
     Dosage: OTHER STRENGTH : 7.5MG/.6ML;?FREQUENCY : DAILY;?
  2. FONDAPARINUX [Suspect]
     Active Substance: FONDAPARINUX
     Indication: Embolism

REACTIONS (1)
  - Epilepsy [None]
